FAERS Safety Report 4307216-3 (Version None)
Quarter: 2004Q1

REPORT INFORMATION
  Report Type: 
  Country: None (occurrence: None)
  Receive Date: 20040223
  Receipt Date: 20030717
  Transmission Date: 20041129
  Serious: Yes (Other)
  Sender: FDA-Public Use
  Company Number: WAES0307USA02194

PATIENT
  Age: 49 Year
  Sex: Male
  Weight: 77.1115 kg

DRUGS (1)
  1. PROPECIA [Suspect]
     Dosage: 1 MG/DAILY/PO
     Dates: start: 20000101, end: 20030706

REACTIONS (1)
  - GYNAECOMASTIA [None]
